FAERS Safety Report 6313472-2 (Version None)
Quarter: 2009Q3

REPORT INFORMATION
  Report Type: 
  Country: None (occurrence: None)
  Receive Date: 20090814
  Receipt Date: 20090805
  Transmission Date: 20100115
  Serious: Yes (Other)
  Sender: FDA-Public Use
  Company Number: TCI2009A03128

PATIENT
  Age: 62 Year
  Sex: Male

DRUGS (3)
  1. ACTOS [Suspect]
     Indication: DIABETES MELLITUS
     Dosage: 30 MG (30 MG, 1 D) PER ORAL
     Route: 048
     Dates: start: 20090305, end: 20090803
  2. LIPITOR [Suspect]
     Dosage: 10 MG 910 MG, 1 D) PER ORAL
     Route: 048
     Dates: end: 20090803
  3. AMARYL [Concomitant]

REACTIONS (6)
  - ALANINE AMINOTRANSFERASE INCREASED [None]
  - ASPARTATE AMINOTRANSFERASE INCREASED [None]
  - C-REACTIVE PROTEIN INCREASED [None]
  - GAMMA-GLUTAMYLTRANSFERASE INCREASED [None]
  - HEPATIC FUNCTION ABNORMAL [None]
  - JAUNDICE [None]
